FAERS Safety Report 6342918-9 (Version None)
Quarter: 2009Q3

REPORT INFORMATION
  Report Type: 
  Country: None (occurrence: None)
  Receive Date: 20090908
  Receipt Date: 20090831
  Transmission Date: 20100115
  Serious: No
  Sender: FDA-Public Use
  Company Number: US-B.I. PHARMACEUTICALS,INC./RIDGEFIELD-2009-BP-07994BP

PATIENT
  Age: 87 Year
  Sex: Female
  Weight: 66.2 kg

DRUGS (1)
  1. SPIRIVA [Suspect]
     Indication: CHRONIC OBSTRUCTIVE PULMONARY DISEASE
     Dates: end: 20090630

REACTIONS (2)
  - DYSURIA [None]
  - URINARY RETENTION [None]
